FAERS Safety Report 12453689 (Version 1)
Quarter: 2016Q2

REPORT INFORMATION
  Report Type: Spontaneous
  Country: SE (occurrence: SE)
  Receive Date: 20160609
  Receipt Date: 20160609
  Transmission Date: 20160815
  Serious: Yes (Other)
  Sender: FDA-Public Use
  Company Number: SE-ASTRAZENECA-2016SE59238

PATIENT
  Age: 76 Year
  Sex: Female

DRUGS (12)
  1. BUVENTOL EASYHALER [Concomitant]
     Active Substance: ALBUTEROL SULFATE
  2. ALVEDON [Concomitant]
     Active Substance: ACETAMINOPHEN
  3. WARAN [Concomitant]
     Active Substance: WARFARIN SODIUM
  4. CANDESARSTAD [Concomitant]
  5. BURINEX [Concomitant]
     Active Substance: BUMETANIDE
  6. KALEORID [Concomitant]
     Active Substance: POTASSIUM CHLORIDE
  7. EKLIRA GENUAIR [Suspect]
     Active Substance: ACLIDINIUM BROMIDE
     Indication: CHRONIC OBSTRUCTIVE PULMONARY DISEASE
     Route: 055
     Dates: start: 20160321, end: 20160512
  8. PROBECID [Concomitant]
     Active Substance: PROBENECID
  9. DESONIX [Concomitant]
  10. AMLODIPINE [Concomitant]
     Active Substance: AMLODIPINE BESYLATE
  11. ATORVASTATIN [Concomitant]
     Active Substance: ATORVASTATIN
  12. TENORMIN [Concomitant]
     Active Substance: ATENOLOL

REACTIONS (2)
  - Tooth erosion [Unknown]
  - Tooth discolouration [Unknown]

NARRATIVE: CASE EVENT DATE: 20160401
